FAERS Safety Report 5509015-3 (Version None)
Quarter: 2007Q4

REPORT INFORMATION
  Report Type: 
  Country: None (occurrence: None)
  Receive Date: 20071107
  Receipt Date: 20071105
  Transmission Date: 20080405
  Serious: Yes (Death, Other)
  Sender: FDA-Public Use
  Company Number: FR-BRISTOL-MYERS SQUIBB COMPANY-13969563

PATIENT
  Age: 76 Year
  Sex: Male

DRUGS (6)
  1. METHOTREXATE [Suspect]
     Indication: PEMPHIGOID
     Route: 048
  2. CALCIUM FOLINATE [Suspect]
  3. CLOPIDOGREL BISULFATE [Concomitant]
  4. OMEPRAZOLE [Concomitant]
  5. GABAPENTIN [Concomitant]
  6. BUFLOMEDIL [Concomitant]

REACTIONS (3)
  - DEATH [None]
  - PANCYTOPENIA [None]
  - PNEUMONIA [None]
